FAERS Safety Report 21384455 (Version 2)
Quarter: 2025Q4

REPORT INFORMATION
  Report Type: Report from Study
  Country: US (occurrence: US)
  Receive Date: 20220928
  Receipt Date: 20251117
  Transmission Date: 20260119
  Serious: Yes (Other)
  Sender: ROCHE
  Company Number: US-ROCHE-3184422

PATIENT
  Age: 86 Year
  Sex: Female

DRUGS (1)
  1. ERIVEDGE [Suspect]
     Active Substance: VISMODEGIB
     Indication: Basal cell carcinoma
     Dosage: TAKE 1 CAPSULE BY MOUTH EVERY DAY
     Route: 048
     Dates: start: 2023

REACTIONS (5)
  - Malignant neoplasm of eye [Unknown]
  - Eyelid bleeding [Not Recovered/Not Resolved]
  - Scar [Unknown]
  - Memory impairment [Unknown]
  - Cognitive disorder [Unknown]
